FAERS Safety Report 9474937 (Version 1)
Quarter: 2013Q3

REPORT INFORMATION
  Report Type: Spontaneous
  Country: FR (occurrence: None)
  Receive Date: 20130820
  Receipt Date: 20130820
  Transmission Date: 20140515
  Serious: Yes (Other)
  Sender: FDA-Public Use
  Company Number: 7229010

PATIENT
  Age: 71 Year
  Sex: Female

DRUGS (6)
  1. LEVOTHYROX [Suspect]
     Indication: PRODUCT USED FOR UNKNOWN INDICATION
     Route: 048
  2. GABAPENTINE [Suspect]
     Indication: NEURALGIA
     Dates: start: 20130415, end: 20130621
  3. LAROXYL [Suspect]
     Indication: PRODUCT USED FOR UNKNOWN INDICATION
     Route: 048
     Dates: start: 20130409
  4. INEXIUM [Suspect]
     Indication: PRODUCT USED FOR UNKNOWN INDICATION
  5. ZOPICLONE [Suspect]
     Indication: PRODUCT USED FOR UNKNOWN INDICATION
     Route: 048
     Dates: start: 20130413
  6. OXINORM ORO [Suspect]
     Indication: PRODUCT USED FOR UNKNOWN INDICATION
     Dates: start: 20130405

REACTIONS (3)
  - Leukopenia [None]
  - Back pain [None]
  - Neuralgia [None]
